FAERS Safety Report 5003133-4 (Version None)
Quarter: 2006Q2

REPORT INFORMATION
  Report Type: 
  Country: None (occurrence: None)
  Receive Date: 20060516
  Receipt Date: 20050414
  Transmission Date: 20061013
  Serious: Yes (Disabling)
  Sender: FDA-Public Use
  Company Number: US-MERCK-0504USA02467

PATIENT
  Sex: Female
  Weight: 65 kg

DRUGS (12)
  1. VIOXX [Suspect]
     Indication: SPONDYLITIS
     Route: 048
     Dates: start: 20000523, end: 20040901
  2. EFFEXOR [Concomitant]
     Route: 065
  3. LOTREL [Concomitant]
     Route: 065
  4. OMEGA-3 MARINE TRIGLYCERIDES [Concomitant]
     Route: 065
  5. VITAMIN E [Concomitant]
     Route: 065
  6. LIPITOR [Concomitant]
     Route: 065
  7. ALLEGRA [Concomitant]
     Route: 065
  8. ESTRACE [Concomitant]
     Route: 065
  9. LORTAB [Concomitant]
     Route: 065
  10. SKELAXIN [Concomitant]
     Route: 065
  11. ZOVIRAX [Concomitant]
     Route: 065
  12. ALLEGRA [Concomitant]
     Route: 065

REACTIONS (9)
  - AMNESIA [None]
  - ANGIOPATHY [None]
  - ANXIETY [None]
  - DEPRESSION [None]
  - DIABETES MELLITUS NON-INSULIN-DEPENDENT [None]
  - HYPERTENSION [None]
  - INFARCTION [None]
  - INTERVERTEBRAL DISC PROTRUSION [None]
  - PERSONALITY CHANGE [None]
